FAERS Safety Report 7981315-7 (Version None)
Quarter: 2011Q4

REPORT INFORMATION
  Report Type: 
  Country: None (occurrence: None)
  Receive Date: 20111215
  Receipt Date: 20111206
  Transmission Date: 20120403
  Serious: Yes (Other)
  Sender: FDA-Public Use
  Company Number: US-BAYER-2011-117362

PATIENT
  Sex: Female
  Weight: 74.83 kg

DRUGS (3)
  1. PROZAC [Concomitant]
  2. XANAX [Concomitant]
  3. MIRENA [Suspect]
     Indication: CONTRACEPTION

REACTIONS (2)
  - DEVICE EXPULSION [None]
  - GENITAL HAEMORRHAGE [None]
